FAERS Safety Report 4411995-4 (Version None)
Quarter: 2004Q3

REPORT INFORMATION
  Report Type: 
  Country: None (occurrence: None)
  Receive Date: 20040730
  Receipt Date: 20040719
  Transmission Date: 20050211
  Serious: Yes (Other)
  Sender: FDA-Public Use
  Company Number: PHFR2004GB02908

PATIENT
  Age: 61 Year
  Sex: Male

DRUGS (1)
  1. VOLTAREN [Suspect]
     Indication: NECK PAIN
     Dosage: 50MG/DAY
     Route: 048
     Dates: start: 20040520, end: 20040608

REACTIONS (2)
  - OEDEMA PERIPHERAL [None]
  - RASH [None]
